FAERS Safety Report 7482066-8 (Version None)
Quarter: 2011Q2

REPORT INFORMATION
  Report Type: 
  Country: None (occurrence: None)
  Receive Date: 20110516
  Receipt Date: 20110505
  Transmission Date: 20111010
  Serious: Yes (Hospitalization, Disabling)
  Sender: FDA-Public Use
  Company Number: PHHY2011GB37760

PATIENT
  Sex: Female

DRUGS (3)
  1. ALENDRONIC ACID [Suspect]
     Indication: OSTEOPOROSIS
     Dosage: 70 MG, UNK
     Route: 048
  2. MOTILIUM [Concomitant]
     Dosage: UNK UKN, UNK
  3. CALCICHEW D3 [Concomitant]
     Dosage: UNK UKN, UNK

REACTIONS (1)
  - FEMUR FRACTURE [None]
